FAERS Safety Report 16301963 (Version 2)
Quarter: 2019Q2

REPORT INFORMATION
  Report Type: Spontaneous
  Country: FR (occurrence: FR)
  Receive Date: 20190512
  Receipt Date: 20190530
  Transmission Date: 20190711
  Serious: Yes (Death, Congenital Anomaly, Other)
  Sender: FDA-Public Use
  Company Number: PHHY2019FR107072

PATIENT

DRUGS (6)
  1. COMBIVIR [Suspect]
     Active Substance: LAMIVUDINE\ZIDOVUDINE
     Indication: FOETAL EXPOSURE DURING PREGNANCY
     Dosage: UNK
     Route: 064
  2. NEVIRAPINE. [Suspect]
     Active Substance: NEVIRAPINE
     Indication: FOETAL EXPOSURE DURING PREGNANCY
     Dosage: 400 MG, QD (MOTHER DOSE)(1ST TRIMESTER)
     Route: 064
     Dates: start: 20050704
  3. EFAVIRENZ. [Suspect]
     Active Substance: EFAVIRENZ
     Indication: FOETAL EXPOSURE DURING PREGNANCY
     Dosage: 600 MG, QD MOTHER DOSE)(1ST TRIMESTER)
     Route: 064
     Dates: start: 20050523, end: 20050908
  4. DIDANOSINE. [Suspect]
     Active Substance: DIDANOSINE
     Indication: FOETAL EXPOSURE DURING PREGNANCY
     Dosage: UNK
     Route: 064
     Dates: start: 20050523, end: 20050908
  5. EMTRICITABINE [Suspect]
     Active Substance: EMTRICITABINE
     Indication: FOETAL EXPOSURE DURING PREGNANCY
     Dosage: 200 MG, QD MOTHER DOSE)(1ST TRIMESTER)
     Route: 064
     Dates: start: 20050523
  6. KALETRA [Suspect]
     Active Substance: LOPINAVIR\RITONAVIR
     Indication: FOETAL EXPOSURE DURING PREGNANCY
     Dosage: UNK
     Route: 064

REACTIONS (5)
  - Foetal exposure during pregnancy [Fatal]
  - Spinocerebellar disorder [Fatal]
  - Encephalocele [Fatal]
  - Brain herniation [Fatal]
  - Spina bifida [Fatal]
